FAERS Safety Report 7015629 (Version 2)
Quarter: 2013Q1

REPORT INFORMATION
  Report Type: Spontaneous
  Country: US (occurrence: None)
  Receive Date: 20090529
  Receipt Date: 20130110
  Transmission Date: 20140127
  Serious: Yes (Hospitalization)
  Sender: FDA-Public Use
  Company Number: 235818

PATIENT
  Sex: Male
  Weight: 86 kg

DRUGS (11)
  1. PACLITAXEL [Suspect]
     Indication: NON-SMALL CELL LUNG CANCER
     Dosage: 410 MG, 1 EVERY 3 WEEKS, INTRAVENOUS  (NOT OTHERWISE SPECIFIED)
     Route: 042
  2. (CARBOPLATIN) [Suspect]
     Indication: NON-SMALL CELL LUNG CANCER
     Dosage: 1140 MG, ONCE EVERY 3 WEEKS, INTRAVENOUS  (NOT OTHERWISE SPECIFIED)
     Route: 042
  3. BEVACIZUMAB [Suspect]
     Indication: NON-SMALL CELL LUNG CANCER
     Dosage: 1275 MG, ONCE EVERY 3 WEEKS, INTRAVENOUS  (NOT OTHERWISE SPECIFIED)
     Route: 042
  4. PROMETHAZINE HYDROCHLORIDE [Concomitant]
  5. PARACETAMOL [Concomitant]
  6. ONDANSETRON [Concomitant]
  7. METOCLOPRAMIDE [Concomitant]
  8. SODIUM CHLORIDE [Concomitant]
  9. DARBEPOETIN ALFA [Concomitant]
  10. RANITIDINE [Concomitant]
  11. DEXAMETHASONE [Concomitant]

REACTIONS (4)
  - Deep vein thrombosis [None]
  - Renal impairment [None]
  - Anaemia [None]
  - Neutropenia [None]
